FAERS Safety Report 8593022-0 (Version None)
Quarter: 2012Q3

REPORT INFORMATION
  Report Type: 
  Country: None (occurrence: None)
  Receive Date: 20120814
  Receipt Date: 19910603
  Transmission Date: 20120928
  Serious: Yes (Death, Hospitalization)
  Sender: FDA-Public Use
  Company Number: US-ROCHE-1100486

PATIENT
  Sex: Female

DRUGS (11)
  1. ACTIVASE [Suspect]
     Indication: ARTERIOSCLEROSIS CORONARY ARTERY
  2. HEPARIN [Concomitant]
     Dosage: 100 U 1 ML
  3. CALCIUM CHLORIDE [Concomitant]
  4. LIDOCAINE [Concomitant]
  5. EPINEPHRINE [Concomitant]
  6. DEXTROSE IN LACTATED RINGER'S [Concomitant]
  7. ISUPREL [Concomitant]
     Dosage: 0.2 MG/ML
  8. DOPAMINE HCL [Concomitant]
  9. DOBUTREX [Concomitant]
  10. DEXTROSE 5% 0.9% NACL [Concomitant]
  11. DOBUTREX [Concomitant]
     Dosage: 47.50

REACTIONS (3)
  - RESPIRATORY ARREST [None]
  - CARDIOGENIC SHOCK [None]
  - DEATH [None]
